FAERS Safety Report 10395321 (Version 1)
Quarter: 2014Q3

REPORT INFORMATION
  Report Type: Spontaneous
  Country: US (occurrence: US)
  Receive Date: 20140820
  Receipt Date: 20140820
  Transmission Date: 20150326
  Serious: No
  Sender: FDA-Public Use
  Company Number: US-PFIZER INC-2014229734

PATIENT
  Age: 67 Year
  Sex: Female

DRUGS (1)
  1. SUTENT [Suspect]
     Active Substance: SUNITINIB MALATE
     Indication: LUNG ADENOCARCINOMA METASTATIC
     Dosage: 50 MG, PER DAY
     Dates: start: 20140806

REACTIONS (4)
  - Dry skin [Unknown]
  - Dry mouth [Unknown]
  - Asthenia [Unknown]
  - Off label use [Unknown]

NARRATIVE: CASE EVENT DATE: 2014
